FAERS Safety Report 8920204 (Version 1)
Quarter: 2012Q4

REPORT INFORMATION
  Report Type: 
  Country: US (occurrence: US)
  Receive Date: 20121121
  Receipt Date: 20121121
  Transmission Date: 20130627
  Serious: Yes (Hospitalization)
  Sender: FDA-Public Use
  Company Number: US-ALLERGAN-1216043US

PATIENT
  Age: 38 Year
  Sex: Female

DRUGS (2)
  1. BOTOX� [Suspect]
     Indication: MIGRAINE
     Dosage: UNK, single
     Route: 030
     Dates: start: 20120116, end: 20120116
  2. MEDICATIONS NOS [Concomitant]
     Indication: DRUG USE FOR UNKNOWN INDICATION

REACTIONS (6)
  - Meningitis bacterial [Unknown]
  - Headache [Unknown]
  - Pyrexia [Unknown]
  - Neck pain [Unknown]
  - Pain [Unknown]
  - Gait disturbance [Unknown]
